FAERS Safety Report 21161334 (Version 1)
Quarter: 2022Q3

REPORT INFORMATION
  Report Type: Spontaneous
  Country: US (occurrence: None)
  Receive Date: 20220801
  Receipt Date: 20220801
  Transmission Date: 20221026
  Serious: Yes (Disabling, Other)
  Sender: FDA-Public Use
  Company Number: None

PATIENT
  Age: 76 Year
  Sex: Female
  Weight: 59.4 kg

DRUGS (7)
  1. DEPO-MEDROL [Suspect]
     Active Substance: METHYLPREDNISOLONE ACETATE
     Indication: Fibromyalgia
     Dosage: OTHER QUANTITY : 1 TABLET(S);?OTHER FREQUENCY : MORNING, LUNCH BED;?
     Route: 048
     Dates: start: 20220726, end: 20220730
  2. DEPO-MEDROL [Suspect]
     Active Substance: METHYLPREDNISOLONE ACETATE
     Indication: Rheumatoid arthritis
  3. TRANXENE [Concomitant]
     Active Substance: CLORAZEPATE DIPOTASSIUM
  4. Vitamin D3 2,000IU [Concomitant]
  5. Magnesium 400mg [Concomitant]
  6. Ester C 500 mg [Concomitant]
  7. Lutein Fiber Capsules [Concomitant]

REACTIONS (7)
  - Flatulence [None]
  - Dizziness [None]
  - Diarrhoea [None]
  - Eructation [None]
  - Gastrooesophageal reflux disease [None]
  - Adverse drug reaction [None]
  - Product substitution issue [None]

NARRATIVE: CASE EVENT DATE: 20220729
